FAERS Safety Report 5424522-X (Version None)
Quarter: 2007Q3

REPORT INFORMATION
  Report Type: 
  Country: None (occurrence: None)
  Receive Date: 20070822
  Receipt Date: 20070807
  Transmission Date: 20080115
  Serious: Yes (Other)
  Sender: FDA-Public Use
  Company Number: 8026073

PATIENT
  Age: 13 Year
  Sex: Male
  Weight: 7.8 kg

DRUGS (1)
  1. KEPPRA [Suspect]
     Dosage: 1200 MG ONCE PO
     Route: 048

REACTIONS (3)
  - ACCIDENTAL OVERDOSE [None]
  - IATROGENIC INJURY [None]
  - WRONG DRUG ADMINISTERED [None]
